FAERS Safety Report 8880582 (Version 2)
Quarter: 2012Q4

REPORT INFORMATION
  Report Type: 
  Country: US (occurrence: US)
  Receive Date: 20121101
  Receipt Date: 20121116
  Transmission Date: 20130627
  Serious: Yes (Hospitalization)
  Sender: FDA-Public Use
  Company Number: US-BAYER-2012-114432

PATIENT
  Age: 25 Year
  Sex: Female

DRUGS (12)
  1. OCELLA [Suspect]
     Dosage: UNK
     Dates: start: 200910
  2. YASMIN [Suspect]
  3. YAZ [Suspect]
     Indication: ACNE
  4. TYLENOL NUMBER 3 [Concomitant]
     Indication: PAIN
     Dosage: 300-30mg, 1-2 tablets every 4-6 hours as needed
  5. ASPIRIN [Concomitant]
     Indication: PAIN
     Dosage: 325 mg, PRN
  6. BENZACLIN [Concomitant]
     Indication: ACNE
     Dosage: UNK UNK, BID to face
  7. IBUPROFEN [Concomitant]
     Indication: MIGRAINE
     Dosage: 200 mg, PRN, 2-4 tablets
  8. TOPAMAX [Concomitant]
     Indication: CEREBRAL CYST
     Dosage: 25 mg, UNK
  9. CODEINE [Concomitant]
     Indication: MIGRAINE
     Dosage: UNK UNK, PRN
  10. IRON SULFATE [Concomitant]
  11. NORTRIPTYLINE [Concomitant]
  12. AMOXICILLIN [Concomitant]

REACTIONS (4)
  - Pulmonary embolism [Recovered/Resolved]
  - Injury [Recovered/Resolved]
  - Pain [None]
  - Pain [Recovered/Resolved]
